FAERS Safety Report 6509930-8 (Version None)
Quarter: 2009Q4

REPORT INFORMATION
  Report Type: 
  Country: None (occurrence: None)
  Receive Date: 20091222
  Receipt Date: 20091211
  Transmission Date: 20100525
  Serious: Yes (Other)
  Sender: FDA-Public Use
  Company Number: PHHY2009NL55073

PATIENT
  Sex: Female

DRUGS (5)
  1. DIOVAN [Suspect]
     Indication: HYPERTENSION
     Dosage: 80 MG
  2. DIOVAN [Suspect]
     Dosage: 160 MG
  3. RASILEZ [Suspect]
     Indication: HYPERTENSION
     Dosage: 150 MG, UNK
  4. ADRENAL GLAND HORMONE [Concomitant]
     Dosage: UNK
  5. THYROID HORMONES [Concomitant]
     Dosage: UNK

REACTIONS (7)
  - BLOOD PRESSURE FLUCTUATION [None]
  - CHILLS [None]
  - DYSPNOEA [None]
  - FEELING ABNORMAL [None]
  - FLATULENCE [None]
  - HYPERTENSION [None]
  - RASH MACULO-PAPULAR [None]
